FAERS Safety Report 8154862-5 (Version None)
Quarter: 2012Q1

REPORT INFORMATION
  Report Type: 
  Country: None (occurrence: None)
  Receive Date: 20120221
  Receipt Date: 20120214
  Transmission Date: 20120608
  Serious: Yes (Other)
  Sender: FDA-Public Use
  Company Number: PHEH2012US003813

PATIENT
  Sex: Female

DRUGS (5)
  1. AFINITOR [Suspect]
     Indication: TUBEROUS SCLEROSIS
     Dosage: 5 MG DAILY
     Route: 048
     Dates: start: 20091209
  2. ZOLOFT [Concomitant]
  3. STRATTERA [Concomitant]
  4. VIMPAT [Concomitant]
  5. CLARITIN [Concomitant]

REACTIONS (1)
  - CONVULSION [None]
